FAERS Safety Report 22395074 (Version 1)
Quarter: 2023Q2

REPORT INFORMATION
  Report Type: Spontaneous
  Country: US (occurrence: None)
  Receive Date: 20230531
  Receipt Date: 20230531
  Transmission Date: 20230722
  Serious: No
  Sender: FDA-Public Use
  Company Number: None

PATIENT
  Age: 40 Year
  Sex: Female
  Weight: 135.62 kg

DRUGS (1)
  1. STELARA [Suspect]
     Active Substance: USTEKINUMAB
     Indication: Psoriatic arthropathy
     Dosage: INJECT 90MG SUBCUTANEOUSLY EVERY 12 WEEKS AS DIRECTED.     ?
     Route: 058
     Dates: start: 202106

REACTIONS (1)
  - Urinary tract infection [None]
